FAERS Safety Report 5058503-5 (Version None)
Quarter: 2006Q3

REPORT INFORMATION
  Report Type: 
  Country: None (occurrence: None)
  Receive Date: 20060721
  Receipt Date: 20060626
  Transmission Date: 20061208
  Serious: Yes (Hospitalization, Disabling)
  Sender: FDA-Public Use
  Company Number: CZ-ABBOTT-06P-217-0336909-00

PATIENT
  Sex: Female
  Weight: 66.5 kg

DRUGS (26)
  1. ZEMPLAR [Suspect]
     Indication: HYPERPARATHYROIDISM
     Route: 042
     Dates: start: 20060405
  2. ENALAPRIL MALEATE [Concomitant]
     Indication: HYPERTENSION
     Route: 048
  3. FUROSEMIDE [Concomitant]
     Indication: HYPERTENSION
     Route: 048
  4. ASCORUTIN [Concomitant]
     Indication: RENAL FAILURE CHRONIC
     Route: 048
  5. ACETYLSALICYLIC ACID SRT [Concomitant]
     Indication: PLATELET AGGREGATION INHIBITION
     Route: 048
  6. NITRENDIPINE [Concomitant]
     Indication: HYPERTENSION
     Route: 048
  7. TELMISARTAN [Concomitant]
     Indication: HYPERTENSION
     Route: 048
  8. CYNT [Concomitant]
     Indication: HYPERTENSION
     Route: 048
  9. SEVELAMER HYDROCHLORIDE [Concomitant]
     Indication: RENAL FAILURE CHRONIC
     Route: 048
  10. CALCIUM CARBONATE [Concomitant]
     Indication: RENAL FAILURE CHRONIC
     Route: 048
  11. SULODEXIDE [Concomitant]
     Indication: MYOCARDIAL ISCHAEMIA
     Route: 048
  12. CAPIVEN [Concomitant]
     Indication: VENOUS INSUFFICIENCY
     Route: 048
  13. METOCLOPRAMIDE HYDROCHLORIDE [Concomitant]
     Indication: DRUG USE FOR UNKNOWN INDICATION
  14. FUROSEMIDE [Concomitant]
     Indication: DRUG USE FOR UNKNOWN INDICATION
     Route: 042
  15. CLONAZEPAM [Concomitant]
     Indication: DRUG USE FOR UNKNOWN INDICATION
  16. F1/1 200 ML + OXANTIL + NACL + RANITAL [Concomitant]
     Indication: DRUG USE FOR UNKNOWN INDICATION
  17. DIAZEPAM [Concomitant]
     Indication: DRUG USE FOR UNKNOWN INDICATION
  18. BISULEPIN HYDROCHLORIDE [Concomitant]
     Indication: DRUG USE FOR UNKNOWN INDICATION
  19. GABAPENTIN [Concomitant]
     Indication: DRUG USE FOR UNKNOWN INDICATION
  20. GABAPENTIN [Concomitant]
     Indication: INITIAL INSOMNIA
     Dates: start: 20060501
  21. GABAPENTIN [Concomitant]
     Indication: RESTLESS LEGS SYNDROME
  22. LOMOTIL [Concomitant]
     Indication: DRUG USE FOR UNKNOWN INDICATION
  23. PYRIDOXINE HYDROCHLORIDE INJ [Concomitant]
     Indication: DRUG USE FOR UNKNOWN INDICATION
  24. GABAPENTIN [Concomitant]
     Indication: INSOMNIA
  25. GABAPENTIN [Concomitant]
  26. GABAPENTIN [Concomitant]
     Indication: PARAESTHESIA

REACTIONS (16)
  - AORTIC ARTERIOSCLEROSIS [None]
  - BLOOD PRESSURE INCREASED [None]
  - CARDIOMEGALY [None]
  - CEREBRAL ATROPHY [None]
  - DEPRESSED MOOD [None]
  - DISORIENTATION [None]
  - FISTULA [None]
  - HEMIPLEGIA [None]
  - ISCHAEMIC STROKE [None]
  - OEDEMA PERIPHERAL [None]
  - OSTEOMA [None]
  - PARESIS [None]
  - PULMONARY CONGESTION [None]
  - SOMNOLENCE [None]
  - SYNCOPE [None]
  - VERTIGO [None]
